FAERS Safety Report 9676276 (Version 1)
Quarter: 2013Q4

REPORT INFORMATION
  Report Type: Spontaneous
  Country: AE (occurrence: AE)
  Receive Date: 20131107
  Receipt Date: 20131107
  Transmission Date: 20140711
  Serious: Yes (Hospitalization, Other)
  Sender: FDA-Public Use
  Company Number: AE-ASTRAZENECA-2013SE79616

PATIENT
  Sex: Female

DRUGS (1)
  1. MARCAINE SPINAL HEAVY [Suspect]
     Indication: SPINAL ANAESTHESIA
     Route: 037
     Dates: start: 20131027, end: 20131027

REACTIONS (2)
  - Headache [Recovered/Resolved]
  - Anaesthetic complication [Recovered/Resolved]
